FAERS Safety Report 9185189 (Version 1)
Quarter: 2013Q1

REPORT INFORMATION
  Report Type: Spontaneous
  Country: FR (occurrence: FR)
  Receive Date: 20130325
  Receipt Date: 20130325
  Transmission Date: 20140127
  Serious: Yes (Hospitalization)
  Sender: FDA-Public Use
  Company Number: PHHY2013FR027807

PATIENT
  Age: 65 Year
  Sex: Male

DRUGS (4)
  1. COTAREG [Suspect]
  2. METFORMIN [Suspect]
     Dates: end: 20130301
  3. VICTOZA [Suspect]
  4. LEVEMIR [Suspect]

REACTIONS (4)
  - Pyrexia [Not Recovered/Not Resolved]
  - Myalgia [Not Recovered/Not Resolved]
  - Alanine aminotransferase increased [Not Recovered/Not Resolved]
  - Blood alkaline phosphatase increased [Not Recovered/Not Resolved]
